FAERS Safety Report 8983082 (Version 1)
Quarter: 2012Q4

REPORT INFORMATION
  Report Type: 
  Country: DE (occurrence: DE)
  Receive Date: 20121223
  Receipt Date: 20121223
  Transmission Date: 20130627
  Serious: Yes (Hospitalization, Other)
  Sender: FDA-Public Use
  Company Number: PHHY2012DE118384

PATIENT
  Age: 64 None
  Sex: Female
  Weight: 75.5 kg

DRUGS (12)
  1. BASILIXIMAB [Suspect]
     Indication: RENAL TRANSPLANT
     Dosage: 20 mg, (frequency 1-0-0)
     Route: 048
     Dates: start: 20100409
  2. TACROLIMUS [Suspect]
     Indication: RENAL TRANSPLANT
     Dosage: 7 mg, (frequency 1-0-0)
     Route: 048
     Dates: start: 20100409
  3. PREDNISOLONE [Suspect]
     Dosage: 25 mg, (frequency 1-0-0)
     Route: 048
     Dates: start: 20100409
  4. MYCOPHENOLATE MOFETIL [Suspect]
     Indication: RENAL TRANSPLANT
     Dosage: 1000 mg, (frequency1-0-1)
     Route: 048
     Dates: start: 20100409, end: 20110125
  5. MYCOPHENOLATE MOFETIL [Suspect]
     Dosage: 500 mg, (frequency1-0-1)
     Dates: start: 20110127
  6. THYRONAJOD [Concomitant]
     Dosage: 1 DF
  7. PANTOPRAZOLE [Concomitant]
     Dosage: 1 DF
  8. NEPHROTRANS [Concomitant]
     Dosage: 3 DF, UNK
  9. VIGANTOLETTEN [Concomitant]
     Dosage: 1 DF, UNK
  10. CALCIUM CARBONATE [Concomitant]
     Dosage: 2 DF, UNK
  11. BISOPROLOL [Concomitant]
     Dosage: 1 DF, UNK
  12. AMLODIPINE [Concomitant]
     Dosage: 1 DF, UNK

REACTIONS (5)
  - Diarrhoea [Recovered/Resolved]
  - Dehydration [Recovered/Resolved]
  - C-reactive protein increased [Recovered/Resolved]
  - Enterococcal infection [Unknown]
  - Creatinine urine increased [Unknown]
